FAERS Safety Report 8288926-2 (Version None)
Quarter: 2012Q2

REPORT INFORMATION
  Report Type: 
  Country: None (occurrence: None)
  Receive Date: 20120412
  Receipt Date: 20120410
  Transmission Date: 20120825
  Serious: Yes (Other)
  Sender: FDA-Public Use
  Company Number: ADR-2011-11391

PATIENT
  Sex: Female

DRUGS (2)
  1. BACLOFEN [Suspect]
     Indication: MUSCLE SPASTICITY
     Dosage: 325.42 MCG, DAILY
  2. BACLOFEN [Suspect]
     Indication: CEREBRAL PALSY
     Dosage: 325.42 MCG, DAILY

REACTIONS (2)
  - IMPLANT SITE ERYTHEMA [None]
  - IMPLANT SITE EROSION [None]
